FAERS Safety Report 9951402 (Version 1)
Quarter: 2014Q1

REPORT INFORMATION
  Report Type: Report from Study
  Country: US (occurrence: US)
  Receive Date: 20140304
  Receipt Date: 20140304
  Transmission Date: 20141002
  Serious: No
  Sender: FDA-Public Use
  Company Number: US-ABBVIE-13P-163-1070945-00

PATIENT
  Age: 56 Year
  Sex: Female

DRUGS (6)
  1. HUMIRA [Suspect]
     Indication: RHEUMATOID ARTHRITIS
     Dates: start: 200701, end: 201302
  2. HUMIRA [Suspect]
     Dates: start: 20130308
  3. KLONOPIN [Concomitant]
     Indication: ANXIETY
     Route: 048
  4. REMERON [Concomitant]
     Indication: DEPRESSION
     Dosage: AT BEDTIME
     Route: 048
  5. CYMBALTA [Concomitant]
     Indication: DEPRESSION
     Dosage: 60 MG DAILY
     Route: 048
  6. IMITREX [Concomitant]
     Indication: MIGRAINE
     Dosage: 100 MG AS NEEDED

REACTIONS (2)
  - Coccydynia [Not Recovered/Not Resolved]
  - Local swelling [Not Recovered/Not Resolved]
